FAERS Safety Report 4551186-X (Version None)
Quarter: 2005Q1

REPORT INFORMATION
  Report Type: 
  Country: None (occurrence: None)
  Receive Date: 20050106
  Receipt Date: 20041222
  Transmission Date: 20050727
  Serious: Yes (Hospitalization)
  Sender: FDA-Public Use
  Company Number: 2000-FF-S0689

PATIENT
  Age: 24 Hour
  Sex: Male

DRUGS (18)
  1. VIRAMUNE [Suspect]
     Indication: HIV INFECTION
     Dosage: PO
     Route: 048
     Dates: start: 20000306
  2. VIRAMUNE [Suspect]
     Indication: MATERNAL CONDITION AFFECTING FOETUS
     Dosage: PO
     Route: 048
     Dates: start: 20000306
  3. VIRAMUNE [Suspect]
     Indication: PROPHYLAXIS AGAINST HIV INFECTION
     Dosage: IU
     Route: 015
     Dates: end: 20000306
  4. VIDEX [Suspect]
     Indication: HIV INFECTION
     Dosage: SEE IMAGE
     Dates: end: 20000306
  5. VIDEX [Suspect]
     Indication: HIV INFECTION
     Dosage: SEE IMAGE
  6. CRIXIVAN [Suspect]
     Indication: HIV INFECTION
     Dosage: IU
     Route: 015
  7. NORVIR [Suspect]
     Indication: HIV INFECTION
     Dosage: IU
     Route: 015
  8. ZERIT [Suspect]
     Indication: HIV INFECTION
     Dosage: SEE IMAGE
     Dates: end: 20000306
  9. ZERIT [Suspect]
     Indication: HIV INFECTION
     Dosage: SEE IMAGE
  10. INVIRASE [Concomitant]
  11. RETROVIR [Concomitant]
  12. BACTRIM [Concomitant]
  13. GYNO-PEVARYL (ECONAZOLE NITRATE) (OV) [Concomitant]
  14. NICARDIPINE HCL [Concomitant]
  15. SALBUTAMOL (SALBUTAMOL) [Concomitant]
  16. SPASFON (SPASFON) [Concomitant]
  17. SUSTIVA [Concomitant]
  18. COMBIVIR [Concomitant]

REACTIONS (15)
  - ABNORMAL BEHAVIOUR [None]
  - ALANINE AMINOTRANSFERASE INCREASED [None]
  - ASPARTATE AMINOTRANSFERASE INCREASED [None]
  - BLOOD CREATINE PHOSPHOKINASE INCREASED [None]
  - BLOOD LACTATE DEHYDROGENASE INCREASED [None]
  - COMMUNICATION DISORDER [None]
  - DEPRESSION [None]
  - DRUG EXPOSURE DURING PREGNANCY [None]
  - GASTROINTESTINAL HAEMORRHAGE [None]
  - HAEMATOCHEZIA [None]
  - HYPERTRIGLYCERIDAEMIA [None]
  - NEONATAL DISORDER [None]
  - NEUTROPENIA NEONATAL [None]
  - PYELONEPHRITIS [None]
  - SPEECH DISORDER [None]
